FAERS Safety Report 5120320-5 (Version None)
Quarter: 2006Q4

REPORT INFORMATION
  Report Type: 
  Country: None (occurrence: None)
  Receive Date: 20061002
  Receipt Date: 20061002
  Transmission Date: 20070319
  Serious: Yes (Other)
  Sender: FDA-Public Use
  Company Number: None

PATIENT
  Age: 46 Year
  Sex: Female
  Weight: 70.3075 kg

DRUGS (3)
  1. SERTRALINE [Suspect]
     Indication: DEPRESSION
     Dosage: 100 MG 2 PO
     Route: 048
     Dates: start: 20060913, end: 20060926
  2. SERTRALINE [Suspect]
     Indication: ANXIETY
     Dosage: 100 MG 2 PO
     Route: 048
     Dates: start: 20060915, end: 20060928
  3. SERTRALINE [Suspect]
     Indication: DEPRESSION
     Dosage: 100 MG 2 PO
     Route: 048
     Dates: start: 20060915, end: 20060928

REACTIONS (5)
  - CRYING [None]
  - DRUG INEFFECTIVE [None]
  - EMOTIONAL DISORDER [None]
  - RETCHING [None]
  - THERAPEUTIC RESPONSE UNEXPECTED WITH DRUG SUBSTITUTION [None]
